FAERS Safety Report 9555583 (Version 1)
Quarter: 2013Q3

REPORT INFORMATION
  Report Type: Spontaneous
  Country: US (occurrence: None)
  Receive Date: 20130904
  Receipt Date: 20130904
  Transmission Date: 20140515
  Serious: Yes (Life-Threatening, Hospitalization, Other)
  Sender: FDA-Public Use
  Company Number: A-US2012-77225

PATIENT
  Age: 57 Year
  Sex: Male

DRUGS (10)
  1. VELETRI [Suspect]
     Indication: PULMONARY ARTERIAL HYPERTENSION
     Dosage: 24 NG/KG, PER MIN, INTRAVENOUS
     Route: 042
     Dates: start: 201211
  2. WARFARIN (WARFARIN) [Concomitant]
  3. SILDENAFIL (SILDENAFIL CITRATE) [Concomitant]
  4. ARGININE (ARGININE) [Concomitant]
  5. KLOR-CON (POTASSIUM CHLORIDE) [Concomitant]
  6. LASIX (FUROSEMIDE SODIUM) [Concomitant]
  7. OMEPRAZOLE (OMEPRAZOLE) [Concomitant]
  8. CALCIUM (CALCIUM0 [Concomitant]
  9. MULTIVITAMIN (VITAMINS NOS) [Concomitant]
  10. LATANOPROST (LATANOPROST) (NONE) [Concomitant]

REACTIONS (2)
  - Dyspnoea [None]
  - Device occlusion [None]
